FAERS Safety Report 14802801 (Version 2)
Quarter: 2018Q2

REPORT INFORMATION
  Report Type: Spontaneous
  Country: US (occurrence: US)
  Receive Date: 20180424
  Receipt Date: 20180426
  Transmission Date: 20180711
  Serious: Yes (Other)
  Sender: FDA-Public Use
  Company Number: US-PFIZER INC-2018163581

PATIENT
  Age: 61 Year
  Sex: Female

DRUGS (1)
  1. METHOTREXATE SODIUM. [Suspect]
     Active Substance: METHOTREXATE SODIUM
     Dosage: 20 MG, WEEKLY(INJECT 0.8 ML (20MG) AS DIRECTED EVERY WEEK.)

REACTIONS (13)
  - Sinus disorder [Unknown]
  - Sleep disorder [Unknown]
  - Bronchitis [Not Recovered/Not Resolved]
  - Musculoskeletal stiffness [Unknown]
  - Drug ineffective [Not Recovered/Not Resolved]
  - Eye irritation [Unknown]
  - Exercise tolerance decreased [Unknown]
  - Immunosuppression [Unknown]
  - Joint swelling [Unknown]
  - Tinnitus [Unknown]
  - Nausea [Unknown]
  - Headache [Unknown]
  - Fatigue [Unknown]
